FAERS Safety Report 5584650-5 (Version None)
Quarter: 2008Q1

REPORT INFORMATION
  Report Type: 
  Country: None (occurrence: None)
  Receive Date: 20080103
  Receipt Date: 20071221
  Transmission Date: 20080703
  Serious: Yes (Hospitalization)
  Sender: FDA-Public Use
  Company Number: 013263

PATIENT
  Age: 50 Year
  Sex: Male
  Weight: 98 kg

DRUGS (7)
  1. PRIALT [Suspect]
     Indication: BACK PAIN
     Dosage: 0.17 UG , 0.3 UG , 0.15 UG, 0.05 UG, ONCE/HOUR,INTRATHECAL
     Route: 037
     Dates: start: 20070830, end: 20070910
  2. PRIALT [Suspect]
     Indication: BACK PAIN
     Dosage: 0.17 UG , 0.3 UG , 0.15 UG, 0.05 UG, ONCE/HOUR,INTRATHECAL
     Route: 037
     Dates: start: 20070911, end: 20071022
  3. ACETYLSALICYLIC ACID SRT [Concomitant]
  4. PASPERTIN (METOCLOPRAMIDE HYDROCHLORIDE) [Concomitant]
  5. SIMVASTATIN [Concomitant]
  6. LORAZEPAM [Concomitant]
  7. UBRETID (DISTIGMINE BROMIDE) [Concomitant]

REACTIONS (5)
  - CHILLS [None]
  - FEELING COLD [None]
  - HEADACHE [None]
  - HYPERAESTHESIA [None]
  - PAIN [None]
